FAERS Safety Report 16347276 (Version 1)
Quarter: 2019Q2

REPORT INFORMATION
  Report Type: Spontaneous
  Country: FI (occurrence: FI)
  Receive Date: 20190523
  Receipt Date: 20190523
  Transmission Date: 20190711
  Serious: Yes (Other)
  Sender: FDA-Public Use
  Company Number: FI-NOVOPROD-642796

PATIENT
  Sex: Female
  Weight: 125 kg

DRUGS (4)
  1. DIFORMIN [Concomitant]
     Active Substance: METFORMIN HYDROCHLORIDE
     Indication: TYPE 2 DIABETES MELLITUS
     Dosage: 1500 MG, BID
     Route: 048
  2. VICTOZA [Suspect]
     Active Substance: LIRAGLUTIDE
     Indication: TYPE 2 DIABETES MELLITUS
     Dosage: 1.2 MG, QD
     Route: 058
     Dates: start: 2015
  3. PIOGLITAZONE. [Concomitant]
     Active Substance: PIOGLITAZONE
     Indication: TYPE 2 DIABETES MELLITUS
     Dosage: 15 MG, QD (MORNING)
     Route: 048
  4. PIOGLITAZONE. [Concomitant]
     Active Substance: PIOGLITAZONE
     Dosage: 22.5 MG, QD (DOSE INCREASED, 15 MG IN THE MORNING AND 7.5 MG IN THE EVENING)
     Route: 048

REACTIONS (5)
  - Blood glucose increased [Unknown]
  - Hepatic failure [Unknown]
  - Weight increased [Unknown]
  - Drug ineffective [Unknown]
  - Nonalcoholic fatty liver disease [Unknown]

NARRATIVE: CASE EVENT DATE: 201901
